FAERS Safety Report 9355049 (Version 2)
Quarter: 2013Q3

REPORT INFORMATION
  Report Type: Spontaneous
  Country: US (occurrence: US)
  Receive Date: 20130619
  Receipt Date: 20130814
  Transmission Date: 20140515
  Serious: Yes (Other)
  Sender: FDA-Public Use
  Company Number: US-009507513-1306USA007661

PATIENT
  Sex: Male

DRUGS (1)
  1. NASONEX [Suspect]
     Indication: RHINITIS ALLERGIC
     Dosage: UNK
     Route: 045
     Dates: start: 2009

REACTIONS (4)
  - Surgery [Unknown]
  - Nasal congestion [Not Recovered/Not Resolved]
  - Fatty acid deficiency [Not Recovered/Not Resolved]
  - Overdose [Unknown]
